FAERS Safety Report 15051354 (Version 1)
Quarter: 2018Q2

REPORT INFORMATION
  Report Type: Spontaneous
  Country: US (occurrence: US)
  Receive Date: 20180622
  Receipt Date: 20180622
  Transmission Date: 20180711
  Serious: Yes (Life-Threatening, Hospitalization, Other)
  Sender: FDA-Public Use
  Company Number: US-PFIZER INC-2018250517

PATIENT
  Age: 53 Year
  Sex: Female
  Weight: 56.25 kg

DRUGS (1)
  1. CHANTIX [Suspect]
     Active Substance: VARENICLINE TARTRATE
     Indication: SMOKING CESSATION THERAPY
     Dosage: 1 MG, 2X/DAY
     Route: 048
     Dates: start: 2018, end: 2018

REACTIONS (10)
  - Swelling face [Not Recovered/Not Resolved]
  - Disorientation [Unknown]
  - Hypersensitivity [Unknown]
  - Urticaria [Recovered/Resolved]
  - Pruritus [Recovered/Resolved]
  - Malaise [Unknown]
  - Swelling [Unknown]
  - Hallucination, auditory [Unknown]
  - Nervous system disorder [Unknown]
  - Apparent death [Unknown]

NARRATIVE: CASE EVENT DATE: 201804
